FAERS Safety Report 6588596-5 (Version None)
Quarter: 2010Q1

REPORT INFORMATION
  Report Type: 
  Country: None (occurrence: None)
  Receive Date: 20100218
  Receipt Date: 20091119
  Transmission Date: 20100710
  Serious: No
  Sender: FDA-Public Use
  Company Number: US-ALLERGAN-0916086US

PATIENT
  Sex: Female

DRUGS (2)
  1. BOTOX COSMETIC [Suspect]
     Indication: SKIN WRINKLING
     Dosage: 18 UNITS, SINGLE
     Route: 030
     Dates: start: 20081212, end: 20081212
  2. BOTOX COSMETIC [Suspect]
     Dosage: 19 UNITS, SINGLE
     Route: 030
     Dates: start: 20090319, end: 20090319

REACTIONS (1)
  - CHOKING [None]
